FAERS Safety Report 7779551-8 (Version None)
Quarter: 2011Q3

REPORT INFORMATION
  Report Type: 
  Country: None (occurrence: None)
  Receive Date: 20110927
  Receipt Date: 20110913
  Transmission Date: 20111222
  Serious: No
  Sender: FDA-Public Use
  Company Number: PHHY2011US27201

PATIENT
  Sex: Female
  Weight: 117.1 kg

DRUGS (8)
  1. IBUPROFEN [Concomitant]
     Dosage: 800 MG, BID
     Route: 048
  2. GILENYA [Suspect]
     Dosage: 0.5 MG, QD
     Route: 048
     Dates: start: 20110405
  3. LASIX [Concomitant]
     Dosage: 20 MG, QD
     Route: 048
  4. PRAVASTATIN [Concomitant]
     Indication: LIPIDS INCREASED
     Dosage: 40 MG, QD
     Route: 048
  5. VITAMIN D [Concomitant]
     Dosage: 1000 MEQ, QOD
     Route: 048
  6. LISINOPRIL [Concomitant]
     Indication: HYPERTENSION
     Dosage: 20/12.5 MG DAILY
     Route: 048
  7. VITAMIN B COMPLEX CAP [Concomitant]
     Dosage: 1 DF, DAILY
  8. GILENYA [Suspect]
     Indication: MULTIPLE SCLEROSIS
     Dosage: 0.5 MG, QD
     Route: 048
     Dates: start: 20110202, end: 20110330

REACTIONS (3)
  - WHITE BLOOD CELL COUNT DECREASED [None]
  - NEUTROPENIA [None]
  - CD4 LYMPHOCYTES DECREASED [None]
